FAERS Safety Report 8780025 (Version 1)
Quarter: 2012Q4

REPORT INFORMATION
  Report Type: 
  Country: US (occurrence: US)
  Receive Date: 20120912
  Receipt Date: 20120912
  Transmission Date: 20130627
  Serious: No
  Sender: FDA-Public Use
  Company Number: US-VERTEX PHARMACEUTICAL INC.-AE-2012-005641

PATIENT

DRUGS (14)
  1. INCIVEK [Suspect]
     Indication: HEPATITIS C
     Route: 048
     Dates: start: 20120410
  2. PEGASYS [Concomitant]
     Indication: HEPATITIS C
     Route: 058
     Dates: start: 20120410
  3. RIBAVIRIN [Concomitant]
     Indication: HEPATITIS C
     Route: 048
     Dates: start: 20120410
  4. METFORMIN [Concomitant]
     Route: 048
  5. AMLODIPINE [Concomitant]
     Route: 048
  6. PANTOPRAZOLE [Concomitant]
  7. PROTONIX [Concomitant]
     Indication: GASTROOESOPHAGEAL REFLUX DISEASE
     Route: 048
  8. CREON ENZYMES [Concomitant]
     Route: 048
  9. OXYCODONE [Concomitant]
     Indication: SPINAL COLUMN STENOSIS
     Route: 048
  10. DIAZEPAM [Concomitant]
     Indication: ANXIETY
     Route: 048
  11. SOMA [Concomitant]
     Indication: MUSCLE TIGHTNESS
     Route: 048
  12. XIFAXIN [Concomitant]
     Indication: HEPATIC ENCEPHALOPATHY
     Route: 048
  13. LACTOLOSE [Concomitant]
     Indication: AMMONIA ABNORMAL
     Route: 048
  14. LEVOTHYROXINE [Concomitant]
     Indication: HYPOTHYROIDISM
     Route: 048

REACTIONS (8)
  - Influenza like illness [Not Recovered/Not Resolved]
  - Pyrexia [Not Recovered/Not Resolved]
  - Headache [Not Recovered/Not Resolved]
  - Dizziness [Not Recovered/Not Resolved]
  - Inappropriate schedule of drug administration [Not Recovered/Not Resolved]
  - Incorrect dose administered [Not Recovered/Not Resolved]
  - Rash pruritic [Recovered/Resolved]
  - Nausea [Not Recovered/Not Resolved]
